FAERS Safety Report 13676893 (Version 1)
Quarter: 2017Q2

REPORT INFORMATION
  Report Type: Spontaneous
  Country: US (occurrence: US)
  Receive Date: 20170622
  Receipt Date: 20170622
  Transmission Date: 20170830
  Serious: No
  Sender: FDA-Public Use
  Company Number: US-BAYER-2017-120416

PATIENT
  Age: 64 Year
  Sex: Male
  Weight: 125 kg

DRUGS (1)
  1. MIRALAX [Suspect]
     Active Substance: POLYETHYLENE GLYCOL 3350
     Indication: GASTROINTESTINAL DISORDER
     Dosage: 17 G, UNK
     Route: 048
     Dates: start: 2014, end: 20170620

REACTIONS (4)
  - Inappropriate prescribing [Unknown]
  - Unevaluable event [Unknown]
  - Incorrect drug administration duration [Unknown]
  - Flatulence [Recovered/Resolved]

NARRATIVE: CASE EVENT DATE: 2014
